FAERS Safety Report 7484448-7 (Version None)
Quarter: 2011Q2

REPORT INFORMATION
  Report Type: 
  Country: None (occurrence: None)
  Receive Date: 20110517
  Receipt Date: 20110502
  Transmission Date: 20111010
  Serious: Yes (Hospitalization, Other)
  Sender: FDA-Public Use
  Company Number: JP-ELI_LILLY_AND_COMPANY-JP201103001738

PATIENT
  Sex: Male
  Weight: 51 kg

DRUGS (25)
  1. NAUZELIN [Concomitant]
     Dosage: 20 MG, TID
     Route: 048
     Dates: end: 20110301
  2. NAUZELIN [Concomitant]
     Dosage: 20 MG, TID
     Route: 048
     Dates: start: 20110304, end: 20110310
  3. CODEINE PHOSPHATE [Concomitant]
     Dosage: 2 G, PRN
     Route: 048
  4. PURSENNID [Concomitant]
     Dosage: 12 MG, QD
     Route: 048
  5. ALOSITOL [Concomitant]
     Dosage: 100 MG, QD
     Route: 048
     Dates: start: 20110311, end: 20110411
  6. PANVITAN [Concomitant]
     Dosage: 1 G, QD
     Route: 048
     Dates: end: 20110221
  7. ZOLPIDEM [Concomitant]
     Dosage: 5 MG, PRN
     Route: 048
  8. METHYCOBAL [Concomitant]
     Dosage: 1000 UG, UNK
     Dates: end: 20110215
  9. LASIX [Concomitant]
     Dosage: 20 MG, QD
     Route: 048
     Dates: start: 20110304, end: 20110411
  10. SIGMART [Concomitant]
     Dosage: 5 MG, TID
     Route: 048
     Dates: end: 20110301
  11. DEXART [Concomitant]
     Dosage: 3.3 MG, UNK
     Dates: start: 20110224, end: 20110224
  12. ALIMTA [Suspect]
     Indication: LUNG NEOPLASM MALIGNANT
     Dosage: 800 MG, UNK
     Route: 042
     Dates: start: 20110222, end: 20110222
  13. SIGMART [Concomitant]
     Dosage: 5 MG, TID
     Route: 048
     Dates: start: 20110304, end: 20110411
  14. ALOSITOL [Concomitant]
     Dosage: 100 MG, BID
     Route: 048
     Dates: end: 20110301
  15. MUCOSTA [Concomitant]
     Dosage: 100 MG, TID
     Route: 048
     Dates: end: 20110301
  16. CODEINE PHOSPHATE [Concomitant]
     Dosage: 40 MG, TID
     Route: 048
     Dates: end: 20110222
  17. DEXART [Concomitant]
     Dosage: 6.6 MG, UNK
     Dates: start: 20110222, end: 20110222
  18. LASIX [Concomitant]
     Dosage: 20 MG, QD
     Route: 048
     Dates: end: 20110301
  19. MUCOSTA [Concomitant]
     Dosage: 100 MG, TID
     Route: 048
     Dates: start: 20110304, end: 20110411
  20. DECADRON [Concomitant]
     Dosage: 2 MG, BID
     Route: 048
     Dates: end: 20110223
  21. PURSENNID [Concomitant]
     Dosage: 24 MG, PRN
     Route: 048
  22. CARBOPLATIN [Concomitant]
     Indication: LUNG NEOPLASM MALIGNANT
     Dosage: 530 MG, UNK
     Dates: start: 20110222, end: 20110222
  23. RENIVACE [Concomitant]
     Dosage: 5 MG, QD
     Route: 048
     Dates: end: 20110301
  24. ALOSITOL [Concomitant]
     Dosage: 100 MG, BID
     Route: 048
     Dates: start: 20110304, end: 20110310
  25. GRANISETRON                        /01178102/ [Concomitant]
     Dosage: 1 MG, UNK
     Dates: start: 20110222, end: 20110222

REACTIONS (10)
  - OTITIS MEDIA [None]
  - PLATELET COUNT DECREASED [None]
  - OTITIS EXTERNA [None]
  - WHITE BLOOD CELL COUNT DECREASED [None]
  - PHARYNGITIS [None]
  - HEADACHE [None]
  - HAEMOGLOBIN DECREASED [None]
  - NAUSEA [None]
  - VOMITING [None]
  - RASH [None]
